FAERS Safety Report 5660280-1 (Version None)
Quarter: 2008Q1

REPORT INFORMATION
  Report Type: 
  Country: None (occurrence: None)
  Receive Date: 20080306
  Receipt Date: 20080222
  Transmission Date: 20080703
  Serious: Yes (Hospitalization)
  Sender: FDA-Public Use
  Company Number: L08-UKI-00856-01

PATIENT
  Age: 65 Year
  Sex: Male

DRUGS (16)
  1. CITALOPRAM HYDROBROMIDE [Suspect]
  2. METHYLENE BLUE [Suspect]
     Indication: PARATHYROID DISORDER
  3. METHYLENE BLUE [Suspect]
     Indication: PARATHYROID DISORDER
     Dosage: 650 MG IV
     Route: 042
  4. ALFACALCIDOL [Concomitant]
  5. ALUMINUM HYDROXIDE GEL [Concomitant]
  6. ATORVASTATIN CALCIUM [Concomitant]
  7. CLOPIDOGREL [Concomitant]
  8. INSULIN [Concomitant]
  9. OMEPRAZOLE [Concomitant]
  10. QUININE SULPHATE [Concomitant]
  11. SILDENAFIL CITRATE [Concomitant]
  12. PROPOFOL [Concomitant]
  13. FENTANYL [Concomitant]
  14. REMIFENTANIL [Concomitant]
  15. SEVOFLURANE [Concomitant]
  16. MORPHINE [Concomitant]

REACTIONS (17)
  - ACIDOSIS [None]
  - BLOOD POTASSIUM INCREASED [None]
  - BUNDLE BRANCH BLOCK LEFT [None]
  - CALCIUM IONISED DECREASED [None]
  - CARDIAC OUTPUT DECREASED [None]
  - CONTINUOUS HAEMODIAFILTRATION [None]
  - DEPRESSED LEVEL OF CONSCIOUSNESS [None]
  - DISORIENTATION [None]
  - DRUG INTERACTION [None]
  - DRUG TOXICITY [None]
  - ELECTROCARDIOGRAM ST SEGMENT DEPRESSION [None]
  - EMOTIONAL DISTRESS [None]
  - EXTRASYSTOLES [None]
  - HYPERCAPNIA [None]
  - HYPERTHERMIA MALIGNANT [None]
  - POST PROCEDURAL COMPLICATION [None]
  - SEROTONIN SYNDROME [None]
